FAERS Safety Report 5118551-3 (Version None)
Quarter: 2006Q3

REPORT INFORMATION
  Report Type: 
  Country: None (occurrence: None)
  Receive Date: 20060927
  Receipt Date: 20060908
  Transmission Date: 20061208
  Serious: Yes (Hospitalization)
  Sender: FDA-Public Use
  Company Number: CAO06001116

PATIENT
  Age: 72 Year
  Sex: Male

DRUGS (1)
  1. CREST VIVID TOOTHPASTE, FLAVOR UNKNOWN(SODIUM FLUORIDE 0.243%, SODIUM [Suspect]
     Dosage: 1 APPLIC, 2/DAY FOR 1 DAY, INTRAORAL
     Dates: start: 20060905, end: 20060905

REACTIONS (5)
  - ABDOMINAL PAIN UPPER [None]
  - DYSPHAGIA [None]
  - DYSPNOEA [None]
  - PHARYNGEAL OEDEMA [None]
  - SWELLING FACE [None]
